FAERS Safety Report 4522221-X (Version None)
Quarter: 2004Q4

REPORT INFORMATION
  Report Type: 
  Country: None (occurrence: None)
  Receive Date: 20041209
  Receipt Date: 19991112
  Transmission Date: 20050328
  Serious: Yes (Other)
  Sender: FDA-Public Use
  Company Number: US-GLAXOSMITHKLINE-A0315865A

PATIENT
  Age: 47 Year
  Sex: Female
  Weight: 61.22 kg

DRUGS (2)
  1. PAXIL [Suspect]
     Dosage: 20MG PER DAY
     Route: 048
     Dates: start: 19991027, end: 19991103
  2. PAXIL [Suspect]
     Dates: start: 19970101

REACTIONS (26)
  - ABDOMINAL PAIN [None]
  - ABDOMINAL PAIN UPPER [None]
  - AGITATION [None]
  - ANXIETY [None]
  - ASTHENIA [None]
  - CONFUSIONAL STATE [None]
  - DEREALISATION [None]
  - DISABILITY [None]
  - DISTURBANCE IN ATTENTION [None]
  - DIZZINESS [None]
  - DRUG WITHDRAWAL SYNDROME [None]
  - FATIGUE [None]
  - FEELING ABNORMAL [None]
  - HEADACHE [None]
  - IMMOBILE [None]
  - INFLUENZA [None]
  - LETHARGY [None]
  - MEMORY IMPAIRMENT [None]
  - MIGRAINE [None]
  - NAUSEA [None]
  - NERVOUSNESS [None]
  - NIGHTMARE [None]
  - SLEEP DISORDER [None]
  - SUICIDAL IDEATION [None]
  - VERTIGO [None]
  - VOMITING [None]
